FAERS Safety Report 6291859-4 (Version None)
Quarter: 2009Q3

REPORT INFORMATION
  Report Type: 
  Country: None (occurrence: None)
  Receive Date: 20090730
  Receipt Date: 20090721
  Transmission Date: 20100115
  Serious: Yes (Hospitalization, Disabling)
  Sender: FDA-Public Use
  Company Number: CO-GENENTECH-287183

PATIENT
  Sex: Female

DRUGS (2)
  1. LUCENTIS [Suspect]
     Indication: CHOROIDAL NEOVASCULARISATION
     Dosage: 0.3 ML, UNK
     Route: 031
     Dates: start: 20090630
  2. HORMONES [Concomitant]
     Indication: DRUG USE FOR UNKNOWN INDICATION

REACTIONS (10)
  - ARRHYTHMIA [None]
  - ARTERIAL SPASM [None]
  - AUTONOMIC NERVOUS SYSTEM IMBALANCE [None]
  - BRONCHITIS [None]
  - CYANOSIS [None]
  - DIZZINESS [None]
  - DYSPNOEA [None]
  - SYNCOPE [None]
  - TACHYCARDIA [None]
  - VOMITING [None]
